FAERS Safety Report 7832936-3 (Version None)
Quarter: 2011Q4

REPORT INFORMATION
  Report Type: 
  Country: None (occurrence: None)
  Receive Date: 20111019
  Receipt Date: 20111005
  Transmission Date: 20120403
  Serious: Yes (Other)
  Sender: FDA-Public Use
  Company Number: ALK_02041_2011

PATIENT
  Age: 51 Year
  Sex: Female

DRUGS (2)
  1. VIVITROL [Suspect]
     Indication: PRODUCT USED FOR UNKNOWN INDICATION
     Dosage: 380 MG 1X/MO INTRAMUSCULAR
     Route: 030
  2. VIVITROL [Suspect]

REACTIONS (5)
  - PAIN IN EXTREMITY [None]
  - ABSCESS STERILE [None]
  - INJECTION SITE SWELLING [None]
  - INJECTION SITE REACTION [None]
  - INFECTION [None]
